FAERS Safety Report 18046912 (Version 1)
Quarter: 2020Q3

REPORT INFORMATION
  Report Type: Spontaneous
  Country: NL (occurrence: NL)
  Receive Date: 20200720
  Receipt Date: 20200720
  Transmission Date: 20201103
  Serious: Yes (Life-Threatening)
  Sender: FDA-Public Use
  Company Number: NVSC2020NL202568

PATIENT
  Sex: Female
  Weight: 60 kg

DRUGS (2)
  1. SUFENTA [Suspect]
     Active Substance: SUFENTANIL CITRATE
     Indication: ANALGESIC THERAPY
     Dosage: 1 DF, UNKNOWN (ONE DOSAGE FORM)
     Route: 065
     Dates: start: 2020
  2. LINEZOLID. [Suspect]
     Active Substance: LINEZOLID
     Indication: INFECTION
     Dosage: 1200 MG, QD (TABLET)
     Route: 065
     Dates: start: 2020

REACTIONS (2)
  - Hyperthermia [Recovered/Resolved]
  - Haemodynamic instability [Recovered/Resolved]
